FAERS Safety Report 8184532-9 (Version None)
Quarter: 2012Q1

REPORT INFORMATION
  Report Type: 
  Country: None (occurrence: None)
  Receive Date: 20120301
  Receipt Date: 20120217
  Transmission Date: 20120608
  Serious: Yes (Hospitalization, Other)
  Sender: FDA-Public Use
  Company Number: JPI-P-018689

PATIENT
  Age: 44 Year
  Sex: Female
  Weight: 89.8122 kg

DRUGS (5)
  1. UNSPECIFIED SEIZURE  MEDICATIONS [Concomitant]
  2. XYREM [Suspect]
     Indication: CATAPLEXY
     Dosage: SEE IMAGE
     Route: 048
     Dates: start: 20110314, end: 20110101
  3. XYREM [Suspect]
     Indication: CATAPLEXY
     Dosage: SEE IMAGE
     Route: 048
     Dates: start: 20110101, end: 20111128
  4. XYREM [Suspect]
     Indication: CATAPLEXY
     Dosage: SEE IMAGE
     Route: 048
     Dates: start: 20110101, end: 20110101
  5. ARMODAFINIL [Concomitant]

REACTIONS (4)
  - SPEECH DISORDER [None]
  - DEMENTIA [None]
  - DEPRESSED MOOD [None]
  - WEIGHT DECREASED [None]
